FAERS Safety Report 4282755-2 (Version None)
Quarter: 2004Q1

REPORT INFORMATION
  Report Type: 
  Country: None (occurrence: None)
  Receive Date: 20040130
  Receipt Date: 20030424
  Transmission Date: 20041129
  Serious: No
  Sender: FDA-Public Use
  Company Number: US-BRISTOL-MYERS SQUIBB COMPANY-12253050

PATIENT
  Age: 81 Year
  Sex: Female
  Weight: 50 kg

DRUGS (4)
  1. SERZONE [Suspect]
     Indication: DEPRESSION
     Dosage: STARTED AT 25MG DAILY,INCREASED UNTIL 7-APR-03 WHEN SHE STARTED 200MG TWICE DAILY
     Route: 048
     Dates: start: 20030227
  2. ACCUPRIL [Concomitant]
  3. DILTIAZEM HCL [Concomitant]
  4. VITAMIN CAP [Concomitant]

REACTIONS (3)
  - CONSTIPATION [None]
  - FLATULENCE [None]
  - INSOMNIA [None]
